FAERS Safety Report 6789631-1 (Version None)
Quarter: 2010Q2

REPORT INFORMATION
  Report Type: 
  Country: None (occurrence: None)
  Receive Date: 20100624
  Receipt Date: 20100615
  Transmission Date: 20101027
  Serious: No
  Sender: FDA-Public Use
  Company Number: US-BIOGENIDEC-2010BI020731

PATIENT
  Sex: Male

DRUGS (2)
  1. TYSABRI [Suspect]
     Indication: MULTIPLE SCLEROSIS
     Route: 042
     Dates: start: 20080211, end: 20080828
  2. TYSABRI [Suspect]
     Route: 042
     Dates: start: 20090226

REACTIONS (3)
  - HYPOAESTHESIA [None]
  - MOBILITY DECREASED [None]
  - MUSCULAR WEAKNESS [None]
